FAERS Safety Report 26103856 (Version 3)
Quarter: 2025Q4

REPORT INFORMATION
  Report Type: Report from Study
  Country: CA (occurrence: CA)
  Receive Date: 20251129
  Receipt Date: 20251231
  Transmission Date: 20260119
  Serious: Yes (Hospitalization, Other)
  Sender: ALEXION PHARMACEUTICALS
  Company Number: CA-AstraZeneca-CH-01002617A

PATIENT
  Age: 82 Year
  Sex: Male

DRUGS (4)
  1. TEZEPELUMAB [Suspect]
     Active Substance: TEZEPELUMAB
     Indication: Asthma
     Dosage: 210 MILLIGRAM
  2. TEZEPELUMAB [Suspect]
     Active Substance: TEZEPELUMAB
  3. SPIRIVA RESPIMAT [Concomitant]
     Active Substance: TIOTROPIUM BROMIDE
     Dosage: 2.5 MCG 2 PUFFS AT NIGHT
     Route: 065
  4. ZENHALE [Concomitant]
     Active Substance: FORMOTEROL FUMARATE\MOMETASONE FUROATE
     Dosage: 200/5 MCG 2 PUFFS BID OR UP TO 8 PUFFS,
     Route: 065

REACTIONS (9)
  - Internal haemorrhage [Unknown]
  - Arthralgia [Unknown]
  - Osteoarthritis [Unknown]
  - Influenza [Unknown]
  - Blood pressure abnormal [Unknown]
  - Haematoma [Unknown]
  - Dementia [Unknown]
  - Gait disturbance [Unknown]
  - Therapy interrupted [Unknown]
